FAERS Safety Report 12497480 (Version 1)
Quarter: 2016Q2

REPORT INFORMATION
  Report Type: Spontaneous
  Country: DE (occurrence: DE)
  Receive Date: 20160624
  Receipt Date: 20160624
  Transmission Date: 20160815
  Serious: Yes (Hospitalization)
  Sender: FDA-Public Use
  Company Number: DE-JNJFOC-20160614810

PATIENT
  Age: 76 Year
  Sex: Male
  Weight: 103 kg

DRUGS (3)
  1. LOPERAMIDE [Concomitant]
     Active Substance: LOPERAMIDE
     Route: 048
  2. IMBRUVICA [Suspect]
     Active Substance: IBRUTINIB
     Indication: CHRONIC LYMPHOCYTIC LEUKAEMIA
     Route: 048
     Dates: end: 20160519
  3. XARELTO [Concomitant]
     Active Substance: RIVAROXABAN
     Route: 048

REACTIONS (1)
  - Blister [Not Recovered/Not Resolved]

NARRATIVE: CASE EVENT DATE: 20160418
